FAERS Safety Report 9227336 (Version 1)
Quarter: 2013Q2

REPORT INFORMATION
  Report Type: Spontaneous
  Country: US (occurrence: None)
  Receive Date: 20130411
  Receipt Date: 20130411
  Transmission Date: 20140414
  Serious: Yes (Hospitalization)
  Sender: FDA-Public Use
  Company Number: None

PATIENT
  Age: 89 Year
  Sex: Female
  Weight: 50.9 kg

DRUGS (10)
  1. PLAVIX [Suspect]
     Indication: TRANSIENT ISCHAEMIC ATTACK
     Dosage: CHRONIC USE 75 MG DAILY PO
     Route: 048
  2. ASPIRIN [Suspect]
     Dosage: CHRONIC USE 81 MG DAILY PO
     Route: 048
  3. MEGACE [Concomitant]
  4. LABETOLOL [Concomitant]
  5. COZAAR [Concomitant]
  6. SIMVASTATIN [Concomitant]
  7. FERROUS SULFATE [Concomitant]
  8. CHOLECALCIFEROL [Concomitant]
  9. ARANESP [Concomitant]
  10. TRAVATAN-Z [Concomitant]

REACTIONS (1)
  - Diverticulum intestinal haemorrhagic [None]
